FAERS Safety Report 9795100 (Version 2)
Quarter: 2014Q3

REPORT INFORMATION
  Report Type: Report from Study
  Country: JP (occurrence: JP)
  Receive Date: 20140103
  Receipt Date: 20140703
  Transmission Date: 20150326
  Serious: Yes (Death, Other)
  Sender: FDA-Public Use
  Company Number: JP-ROCHE-1326694

PATIENT
  Sex: Male

DRUGS (12)
  1. MAGMITT [Concomitant]
     Active Substance: MAGNESIUM OXIDE
     Indication: DIABETIC NEPHROPATHY
     Route: 048
  2. DIART [Concomitant]
     Active Substance: AZOSEMIDE
     Indication: DIABETIC NEPHROPATHY
     Route: 048
  3. FRANDOL [Concomitant]
     Active Substance: ISOSORBIDE DINITRATE
     Route: 062
  4. ZYLORIC [Concomitant]
     Active Substance: ALLOPURINOL
     Indication: DIABETIC NEPHROPATHY
     Route: 048
  5. 5-FU [Concomitant]
     Active Substance: FLUOROURACIL
     Route: 042
  6. METHOXY POLYETHYLENE GLYCOL-EPOETIN BETA [Suspect]
     Active Substance: PEGZEREPOETIN ALFA
     Indication: NEPHROGENIC ANAEMIA
     Route: 058
     Dates: start: 20130725, end: 20131024
  7. LASIX [Concomitant]
     Active Substance: FUROSEMIDE
     Indication: DIABETIC NEPHROPATHY
     Route: 048
  8. MAINTATE [Concomitant]
     Active Substance: BISOPROLOL FUMARATE
     Route: 048
  9. METHOXY POLYETHYLENE GLYCOL-EPOETIN BETA [Suspect]
     Active Substance: PEGZEREPOETIN ALFA
     Indication: NEPHROGENIC ANAEMIA
     Route: 058
     Dates: start: 20130416, end: 20130612
  10. NORVASC [Concomitant]
     Active Substance: AMLODIPINE BESYLATE
     Indication: DIABETIC NEPHROPATHY
     Route: 048
  11. CARDENALIN [Concomitant]
     Active Substance: DOXAZOSIN MESYLATE
     Route: 048
  12. SODIUM BICARBONATE. [Concomitant]
     Active Substance: SODIUM BICARBONATE
     Indication: DIABETIC NEPHROPATHY
     Route: 048

REACTIONS (4)
  - Hypertension [Unknown]
  - Penile cancer [Fatal]
  - Hypertensive encephalopathy [Unknown]
  - Cardiovascular disorder [Unknown]
